FAERS Safety Report 24729483 (Version 2)
Quarter: 2025Q1

REPORT INFORMATION
  Report Type: Report from Study
  Country: PK (occurrence: PK)
  Receive Date: 20241213
  Receipt Date: 20250113
  Transmission Date: 20250409
  Serious: Yes (Death)
  Sender: ROCHE
  Company Number: PK-ROCHE-10000155230

PATIENT
  Age: 70 Year
  Sex: Female

DRUGS (1)
  1. RITUXIMAB [Suspect]
     Active Substance: RITUXIMAB
     Indication: Diffuse large B-cell lymphoma
     Dosage: BATCH NUMBER NOT AVAILABLE
     Route: 042
     Dates: start: 20240919, end: 20240919

REACTIONS (1)
  - Hepatic failure [Fatal]

NARRATIVE: CASE EVENT DATE: 20241002
